FAERS Safety Report 4992565-6 (Version None)
Quarter: 2006Q1

REPORT INFORMATION
  Report Type: 
  Country: None (occurrence: None)
  Receive Date: 20060313
  Receipt Date: 20060125
  Transmission Date: 20060701
  Serious: No
  Sender: FDA-Public Use
  Company Number: 2006-BP-00944BP

PATIENT
  Age: 82 Year
  Sex: Female

DRUGS (5)
  1. SPIRIVA [Suspect]
     Indication: CHRONIC OBSTRUCTIVE PULMONARY DISEASE
     Dosage: 18 MCG (18 MCG), IH
     Route: 055
     Dates: start: 20050501
  2. ADVAIR (SERETIDE) [Concomitant]
  3. NEXIUM [Concomitant]
  4. FLONASE [Concomitant]
  5. HYPERTENSIVE MEDICATION [Concomitant]

REACTIONS (2)
  - URINARY TRACT INFECTION [None]
  - VAGINAL MUCOSAL BLISTERING [None]
